FAERS Safety Report 21644287 (Version 1)
Quarter: 2022Q4

REPORT INFORMATION
  Report Type: Report from Study
  Country: US (occurrence: US)
  Receive Date: 20221125
  Receipt Date: 20221125
  Transmission Date: 20230113
  Serious: No
  Sender: FDA-Public Use
  Company Number: US-ABBVIE-4163555

PATIENT
  Sex: Male

DRUGS (3)
  1. HUMIRA [Suspect]
     Active Substance: ADALIMUMAB
     Indication: Colitis ulcerative
     Dosage: FORM STRENGTH: 40 MILLIGRAM, DAY 1
     Route: 058
     Dates: start: 20211101, end: 20211101
  2. HUMIRA [Suspect]
     Active Substance: ADALIMUMAB
     Dosage: FORM STRENGTH: 40 MILLIGRAM. DAY 29 AFTERWARD.
     Route: 058
     Dates: start: 20211129, end: 20211129
  3. HUMIRA [Suspect]
     Active Substance: ADALIMUMAB
     Dosage: FORM STRENGTH: 40 MILLIGRAM, DAY 15
     Route: 058
     Dates: start: 20211115, end: 20211115

REACTIONS (2)
  - Fatigue [Recovered/Resolved]
  - Insomnia [Not Recovered/Not Resolved]
